FAERS Safety Report 11699518 (Version 1)
Quarter: 2015Q4

REPORT INFORMATION
  Report Type: Spontaneous
  Country: US (occurrence: US)
  Receive Date: 20151105
  Receipt Date: 20151105
  Transmission Date: 20160304
  Serious: No
  Sender: FDA-Public Use
  Company Number: US-AMGEN-USASP2015115714

PATIENT
  Age: 72 Year
  Sex: Female

DRUGS (1)
  1. ENBREL [Suspect]
     Active Substance: ETANERCEPT
     Indication: RHEUMATOID ARTHRITIS
     Dosage: UNK
     Route: 065
     Dates: start: 201507

REACTIONS (8)
  - Arthropathy [Unknown]
  - Drug ineffective [Unknown]
  - Urinary tract infection [Unknown]
  - Foot fracture [Unknown]
  - Peripheral swelling [Unknown]
  - Joint swelling [Unknown]
  - Joint effusion [Unknown]
  - Pain [Unknown]

NARRATIVE: CASE EVENT DATE: 2015
